FAERS Safety Report 5738644-7 (Version None)
Quarter: 2008Q2

REPORT INFORMATION
  Report Type: 
  Country: None (occurrence: None)
  Receive Date: 20080515
  Receipt Date: 20080512
  Transmission Date: 20081010
  Serious: Yes (Hospitalization, Other)
  Sender: FDA-Public Use
  Company Number: PHEH2008US03986

PATIENT
  Age: 41 Year
  Sex: Female

DRUGS (1)
  1. LAMISIL [Suspect]
     Indication: ONYCHOMYCOSIS
     Dosage: 250 MG, UNK
     Route: 048
     Dates: start: 20080211, end: 20080308

REACTIONS (4)
  - HYPERSENSITIVITY [None]
  - SKIN CHAPPED [None]
  - SYNCOPE [None]
  - URTICARIA [None]
